FAERS Safety Report 23552137 (Version 2)
Quarter: 2024Q1

REPORT INFORMATION
  Report Type: Spontaneous
  Country: CA (occurrence: CA)
  Receive Date: 20240222
  Receipt Date: 20240331
  Transmission Date: 20240409
  Serious: Yes (Life-Threatening, Hospitalization, Other)
  Sender: FDA-Public Use
  Company Number: CA-TEVA-VS-3160292

PATIENT
  Age: 61 Year
  Sex: Female

DRUGS (2)
  1. MYCOPHENOLATE MOFETIL [Suspect]
     Active Substance: MYCOPHENOLATE MOFETIL
     Indication: Immunosuppressant drug therapy
     Route: 065
  2. TACROLIMUS [Suspect]
     Active Substance: TACROLIMUS
     Indication: Immunosuppressant drug therapy
     Dosage: DOSE: 1.0 DOSAGE FORMS
     Route: 065

REACTIONS (4)
  - Brain abscess [Unknown]
  - Cerebral nocardiosis [Unknown]
  - Cerebral toxoplasmosis [Unknown]
  - Encephalomalacia [Unknown]
